FAERS Safety Report 7295246-1 (Version None)
Quarter: 2011Q1

REPORT INFORMATION
  Report Type: 
  Country: None (occurrence: None)
  Receive Date: 20110216
  Receipt Date: 20110208
  Transmission Date: 20110831
  Serious: Yes (Hospitalization)
  Sender: FDA-Public Use
  Company Number: GB-TEVA-267035ISR

PATIENT
  Age: 87 Year
  Sex: Male

DRUGS (2)
  1. DICLOFENAC SODIUM [Suspect]
     Indication: OSTEOARTHRITIS
     Route: 048
     Dates: start: 20080708, end: 20100113
  2. NAPROXEN [Suspect]
     Indication: OSTEOARTHRITIS
     Route: 065
     Dates: start: 20080911, end: 20090529

REACTIONS (3)
  - PULMONARY EMBOLISM [None]
  - LUNG NEOPLASM [None]
  - DYSPNOEA [None]
